FAERS Safety Report 24071149 (Version 1)
Quarter: 2024Q3

REPORT INFORMATION
  Report Type: Report from Study
  Country: RS (occurrence: RS)
  Receive Date: 20240710
  Receipt Date: 20240710
  Transmission Date: 20241017
  Serious: No
  Sender: ROCHE
  Company Number: RS-ROCHE-3563741

PATIENT
  Age: 51 Year
  Sex: Female
  Weight: 81.0 kg

DRUGS (4)
  1. ALECTINIB [Suspect]
     Active Substance: ALECTINIB
     Indication: Non-small cell lung cancer metastatic
     Route: 048
     Dates: start: 20220309
  2. ALECTINIB [Suspect]
     Active Substance: ALECTINIB
     Route: 048
     Dates: start: 20200921
  3. HEFEROL [Concomitant]
     Indication: Anaemia
     Route: 048
     Dates: start: 20221020
  4. HEPALIFE [Concomitant]
     Dosage: HEPATOPROTECTION FOR PROPHYLACTIC PURPOSES
     Route: 048
     Dates: start: 20221020

REACTIONS (1)
  - Uterine leiomyoma [Not Recovered/Not Resolved]

NARRATIVE: CASE EVENT DATE: 20230718
